FAERS Safety Report 7837943-2 (Version None)
Quarter: 2011Q4

REPORT INFORMATION
  Report Type: 
  Country: None (occurrence: None)
  Receive Date: 20111024
  Receipt Date: 20110708
  Transmission Date: 20120403
  Serious: No
  Sender: FDA-Public Use
  Company Number: US-ABBOTT-11P-163-0838311-00

PATIENT
  Sex: Female
  Weight: 63.106 kg

DRUGS (1)
  1. LUPRON DEPOT [Suspect]
     Indication: UTERINE LEIOMYOMA
     Dates: start: 20110501

REACTIONS (7)
  - CONFUSIONAL STATE [None]
  - VAGINAL HAEMORRHAGE [None]
  - DIZZINESS [None]
  - INSOMNIA [None]
  - HEADACHE [None]
  - FLUSHING [None]
  - FALL [None]
